FAERS Safety Report 10388945 (Version 1)
Quarter: 2014Q1

REPORT INFORMATION
  Report Type: Spontaneous
  Country: US (occurrence: None)
  Receive Date: 20140306
  Receipt Date: 20140306
  Transmission Date: 20141002
  Serious: Yes (Hospitalization)
  Sender: FDA-Public Use
  Company Number: 163-21880-1302-1532

PATIENT
  Age: 59 Year
  Sex: Female

DRUGS (9)
  1. REVLIMID (LENALIDOMIDE) (CAPSULES) [Suspect]
     Indication: PLASMA CELL MYELOMA
     Dosage: 10 MG, 14 IN 14 D, PO
     Route: 048
     Dates: start: 20120502
  2. ACYCLOVIR (ACICLOVIR) (ACICLOVIR) [Concomitant]
  3. ASPIRIN LOW DOSE (ACETYLSALICYLIC ACID) [Concomitant]
  4. BACLOFEN [Concomitant]
  5. FUROSEMIDE [Concomitant]
  6. NEXIUM (ESOMEPRAZOLE) [Concomitant]
  7. ONDANSETRON HCL (ONDANSETRON HYDROCHLORIDE) [Concomitant]
  8. POTASSIUM [Concomitant]
  9. PROMETHAZINE HCL (PROMETHAZINE HYDROCHLORIDE) [Concomitant]

REACTIONS (1)
  - Pneumonia [None]
